FAERS Safety Report 20766957 (Version 1)
Quarter: 2022Q2

REPORT INFORMATION
  Report Type: Spontaneous
  Country: SI (occurrence: SI)
  Receive Date: 20220429
  Receipt Date: 20220429
  Transmission Date: 20220721
  Serious: Yes (Other)
  Sender: FDA-Public Use
  Company Number: None

PATIENT
  Age: 71 Year
  Sex: Male

DRUGS (6)
  1. PEMETREXED [Suspect]
     Active Substance: PEMETREXED
     Indication: Lung neoplasm malignant
     Dosage: UNIT DOSE: 1000 MG, EXP.D .: 2023-04-30
     Dates: start: 20220225, end: 20220225
  2. CARBOPLATIN [Suspect]
     Active Substance: CARBOPLATIN
     Indication: Lung neoplasm malignant
     Dosage: KARBOPLATIN MEDAC, UNIT DOSE: 550 MG, STRENGTH: 10 MG/ML, EXP.D .: 2023-02-28
     Dates: start: 20220225, end: 20220225
  3. KEYTRUDA [Suspect]
     Active Substance: PEMBROLIZUMAB
     Indication: Lung neoplasm malignant
     Dosage: UNIT DOSE: 200 MG
     Dates: start: 20220225, end: 20220225
  4. FOLIC ACID [Concomitant]
     Active Substance: FOLIC ACID
     Dosage: UNIT DOSE: 0.8 MG
  5. Ohb12 [Concomitant]
  6. OMEPRAZOLE [Concomitant]
     Active Substance: OMEPRAZOLE

REACTIONS (1)
  - Infusion related reaction [Recovered/Resolved]

NARRATIVE: CASE EVENT DATE: 20220225
